FAERS Safety Report 22322623 (Version 1)
Quarter: 2023Q2

REPORT INFORMATION
  Report Type: Spontaneous
  Country: DE (occurrence: DE)
  Receive Date: 20230516
  Receipt Date: 20230516
  Transmission Date: 20230722
  Serious: Yes (Other)
  Sender: FDA-Public Use
  Company Number: DE-002147023-NVSC2023DE109782

PATIENT
  Sex: Female

DRUGS (3)
  1. MAYZENT [Suspect]
     Active Substance: SIPONIMOD
     Indication: Progressive multiple sclerosis
     Dosage: 1 DOSAGE FORM
     Route: 065
     Dates: start: 20230508
  2. MAYZENT [Suspect]
     Active Substance: SIPONIMOD
     Dosage: 1 DOSAGE FORM
     Route: 065
     Dates: start: 20230509
  3. MAYZENT [Suspect]
     Active Substance: SIPONIMOD
     Dosage: 2 DOSAGE FORM, QD (ON THE DAY OF THIS REPORT AT 11 PM)
     Route: 065
     Dates: start: 20230510

REACTIONS (1)
  - Blood pressure fluctuation [Recovering/Resolving]

NARRATIVE: CASE EVENT DATE: 20230501
